FAERS Safety Report 18164012 (Version 1)
Quarter: 2020Q3

REPORT INFORMATION
  Report Type: Spontaneous
  Country: IL (occurrence: IL)
  Receive Date: 20200818
  Receipt Date: 20200818
  Transmission Date: 20201103
  Serious: Yes (Hospitalization)
  Sender: FDA-Public Use
  Company Number: IL-PFIZER INC-2020318588

PATIENT
  Age: 75 Year
  Sex: Female

DRUGS (1)
  1. EPANUTIN [Suspect]
     Active Substance: PHENYTOIN SODIUM
     Indication: SEIZURE
     Dosage: UNK

REACTIONS (2)
  - Asthenia [Unknown]
  - Confusional state [Unknown]
